FAERS Safety Report 24984745 (Version 1)
Quarter: 2025Q1

REPORT INFORMATION
  Report Type: Spontaneous
  Country: ES (occurrence: ES)
  Receive Date: 20250219
  Receipt Date: 20250219
  Transmission Date: 20250409
  Serious: Yes (Other)
  Sender: TEVA
  Company Number: None

PATIENT
  Age: 61 Year
  Sex: Female

DRUGS (3)
  1. EBASTINE [Suspect]
     Active Substance: EBASTINE
     Indication: Rhinorrhoea
     Dosage: EBASTINA (2231A)
     Route: 065
     Dates: start: 20241112
  2. AZELASTINE HYDROCHLORIDE [Suspect]
     Active Substance: AZELASTINE HYDROCHLORIDE
     Indication: Rhinorrhoea
     Route: 065
     Dates: start: 20241112
  3. FLUTICASONE [Suspect]
     Active Substance: FLUTICASONE
     Indication: Rhinorrhoea
     Route: 065
     Dates: start: 20241112

REACTIONS (3)
  - Dyspnoea [Recovered/Resolved]
  - Paraesthesia [Recovered/Resolved]
  - Tachycardia [Recovered/Resolved]

NARRATIVE: CASE EVENT DATE: 20241112
